FAERS Safety Report 14101770 (Version 18)
Quarter: 2024Q1

REPORT INFORMATION
  Report Type: Report from Study
  Country: CA (occurrence: CA)
  Receive Date: 20171018
  Receipt Date: 20240308
  Transmission Date: 20240410
  Serious: Yes (Life-Threatening, Hospitalization, Other)
  Sender: FDA-Public Use
  Company Number: PHHY2012CA123535

PATIENT
  Age: 37 Year
  Sex: Female

DRUGS (10)
  1. SANDOSTATIN LAR DEPOT [Suspect]
     Active Substance: OCTREOTIDE ACETATE
     Indication: Acromegaly
     Dosage: 20 MG, (QMO) EVERY 4 WEEKS
     Route: 030
     Dates: start: 20050824, end: 20220617
  2. SANDOSTATIN LAR DEPOT [Suspect]
     Active Substance: OCTREOTIDE ACETATE
     Dosage: 30 MG, QMO (ONCE A MONTH)
     Route: 030
     Dates: start: 20100318
  3. SANDOSTATIN LAR DEPOT [Suspect]
     Active Substance: OCTREOTIDE ACETATE
     Dosage: 40 MG, QMO (EVERY 4 WEEKS)
     Route: 030
     Dates: start: 20110120
  4. SANDOSTATIN LAR DEPOT [Suspect]
     Active Substance: OCTREOTIDE ACETATE
     Dosage: 60 MG, QMO (EVERY FOUR WEEKS)
     Route: 030
     Dates: start: 20140724
  5. SANDOSTATIN LAR DEPOT [Suspect]
     Active Substance: OCTREOTIDE ACETATE
     Dosage: 40 MG, QMO (EVERY 28 WEEKS)
     Route: 030
     Dates: start: 20160618
  6. SANDOSTATIN LAR DEPOT [Suspect]
     Active Substance: OCTREOTIDE ACETATE
     Dosage: 30 MG, QMO (EVERY 4 WEEKS)
     Route: 030
     Dates: start: 20160503
  7. SANDOSTATIN LAR DEPOT [Suspect]
     Active Substance: OCTREOTIDE ACETATE
     Dosage: 30 MG, QMO (EVERY 4 WEEKS)
     Route: 030
     Dates: start: 20160601
  8. SANDOSTATIN LAR DEPOT [Suspect]
     Active Substance: OCTREOTIDE ACETATE
     Dosage: 20 MG, QMO (EVERY 4 WEEKS)
     Route: 030
     Dates: start: 20210601
  9. FERAMAX [Concomitant]
     Active Substance: IRON\POLYSACCHARIDES
     Indication: Product used for unknown indication
     Dosage: 150 MG, QD
     Route: 065
     Dates: start: 20170505
  10. PEGVISOMANT [Concomitant]
     Active Substance: PEGVISOMANT
     Indication: Product used for unknown indication
     Dosage: UNK
     Route: 065

REACTIONS (31)
  - Renal cancer stage I [Recovered/Resolved]
  - Anaemia [Unknown]
  - Dizziness [Unknown]
  - Syncope [Unknown]
  - Blood pressure increased [Unknown]
  - Heavy menstrual bleeding [Unknown]
  - Stress [Not Recovered/Not Resolved]
  - Blood pressure systolic increased [Unknown]
  - Menstrual disorder [Unknown]
  - Blood growth hormone decreased [Unknown]
  - Heart rate irregular [Unknown]
  - Ventricular extrasystoles [Unknown]
  - Procedural pain [Unknown]
  - Hyperventilation [Unknown]
  - Dry skin [Unknown]
  - Skin discolouration [Unknown]
  - Arthralgia [Not Recovered/Not Resolved]
  - Pain in extremity [Not Recovered/Not Resolved]
  - Peripheral swelling [Unknown]
  - Hepatic enzyme increased [Unknown]
  - Fibrous cortical defect [Unknown]
  - Heart rate increased [Unknown]
  - Dyspnoea [Unknown]
  - Coagulopathy [Unknown]
  - Underdose [Unknown]
  - Syringe issue [Unknown]
  - Pruritus [Unknown]
  - Injection site mass [Recovering/Resolving]
  - Injection site pain [Recovered/Resolved]
  - Injection site haemorrhage [Unknown]
  - Illness [Recovered/Resolved]

NARRATIVE: CASE EVENT DATE: 20141016
